FAERS Safety Report 6109074-3 (Version None)
Quarter: 2009Q1

REPORT INFORMATION
  Report Type: 
  Country: None (occurrence: None)
  Receive Date: 20090310
  Receipt Date: 20090227
  Transmission Date: 20090719
  Serious: Yes (Other)
  Sender: FDA-Public Use
  Company Number: US-ELI_LILLY_AND_COMPANY-US200903000203

PATIENT
  Sex: Female

DRUGS (2)
  1. EVISTA [Suspect]
     Dosage: UNK, UNKNOWN
     Route: 065
  2. ZOMETA [Concomitant]
     Dosage: UNK, MONTHLY (1/M)
     Route: 042

REACTIONS (3)
  - ANGIOPLASTY [None]
  - RIB FRACTURE [None]
  - STENT PLACEMENT [None]
